FAERS Safety Report 11662900 (Version 1)
Quarter: 2015Q4

REPORT INFORMATION
  Report Type: Spontaneous
  Country: IT (occurrence: IT)
  Receive Date: 20151027
  Receipt Date: 20151027
  Transmission Date: 20160304
  Serious: Yes (Other)
  Sender: FDA-Public Use
  Company Number: IT-SUN PHARMACEUTICAL INDUSTRIES LTD-2015RR-104897

PATIENT

DRUGS (7)
  1. PRAMIPEXOLE. [Concomitant]
     Active Substance: PRAMIPEXOLE
     Indication: PRODUCT USED FOR UNKNOWN INDICATION
     Dosage: 0.45 MG, DAILY
     Route: 065
  2. VENLAFAXINE [Suspect]
     Active Substance: VENLAFAXINE HYDROCHLORIDE
     Indication: PRODUCT USED FOR UNKNOWN INDICATION
     Dosage: 75 MG, DAILY
     Route: 065
  3. LINEZOLID. [Suspect]
     Active Substance: LINEZOLID
     Indication: STREPTOCOCCAL INFECTION
  4. LINEZOLID. [Suspect]
     Active Substance: LINEZOLID
     Indication: STREPTOCOCCAL INFECTION
     Dosage: 600 MG, TID
     Route: 048
  5. ENOXAPARINE [Concomitant]
     Active Substance: ENOXAPARIN
     Indication: PRODUCT USED FOR UNKNOWN INDICATION
     Dosage: 4000 IU, DAILY
     Route: 065
  6. LINEZOLID. [Suspect]
     Active Substance: LINEZOLID
     Indication: STREPTOCOCCAL INFECTION
     Dosage: 600 MG, BID
     Route: 048
  7. LINEZOLID. [Suspect]
     Active Substance: LINEZOLID
     Indication: STREPTOCOCCAL INFECTION

REACTIONS (3)
  - Drug level decreased [Recovered/Resolved]
  - Drug level below therapeutic [Recovered/Resolved]
  - Drug interaction [Unknown]
